FAERS Safety Report 5290569-X (Version None)
Quarter: 2007Q2

REPORT INFORMATION
  Report Type: 
  Country: None (occurrence: None)
  Receive Date: 20070405
  Receipt Date: 20070405
  Transmission Date: 20071010
  Serious: Yes (Hospitalization)
  Sender: FDA-Public Use
  Company Number: None

PATIENT
  Age: 65 Year
  Sex: Male
  Weight: 108 kg

DRUGS (13)
  1. MYCOPHENOLATE MOFETIL [Suspect]
     Indication: IMMUNOSUPPRESSANT DRUG THERAPY
     Dosage: 250MG PO BID
     Route: 048
     Dates: start: 20051010, end: 20060819
  2. MYCOPHENOLATE MOFETIL [Suspect]
     Indication: TRANSPLANT
     Dosage: 250MG PO BID
     Route: 048
     Dates: start: 20051010, end: 20060819
  3. TACROLIMUS [Concomitant]
  4. PREDNISONE TAB [Concomitant]
  5. PRAVASTATIN [Concomitant]
  6. CLOPIDOGREL [Concomitant]
  7. M.V.I. [Concomitant]
  8. METOPROLOL SUCCINATE [Concomitant]
  9. FUROSEMIDE [Concomitant]
  10. FLOMAX [Concomitant]
  11. DOXAZOSIN MESYLATE [Concomitant]
  12. CLONIDINE [Concomitant]
  13. ARANESP [Concomitant]

REACTIONS (8)
  - CHEST PAIN [None]
  - CHILLS [None]
  - DYSPNOEA [None]
  - NAUSEA [None]
  - PANCYTOPENIA [None]
  - PLEURITIC PAIN [None]
  - PYREXIA [None]
  - VOMITING [None]
